FAERS Safety Report 20611895 (Version 1)
Quarter: 2022Q1

REPORT INFORMATION
  Report Type: Spontaneous
  Country: US (occurrence: None)
  Receive Date: 20220317
  Receipt Date: 20220317
  Transmission Date: 20220424
  Serious: No
  Sender: FDA-Public Use
  Company Number: None

PATIENT

DRUGS (2)
  1. DEVICE [Suspect]
     Active Substance: DEVICE
  2. DEXTROSE [Suspect]
     Active Substance: DEXTROSE

REACTIONS (5)
  - Device malfunction [None]
  - Incorrect drug administration rate [None]
  - Incorrect drug administration rate [None]
  - Hypoglycaemia [None]
  - Drug monitoring procedure incorrectly performed [None]

NARRATIVE: CASE EVENT DATE: 20211228
